FAERS Safety Report 7534533-6 (Version None)
Quarter: 2011Q2

REPORT INFORMATION
  Report Type: 
  Country: None (occurrence: None)
  Receive Date: 20110609
  Receipt Date: 20091009
  Transmission Date: 20111010
  Serious: Yes (Other)
  Sender: FDA-Public Use
  Company Number: PHHY2009AU37546

PATIENT
  Sex: Male

DRUGS (3)
  1. VALPROATE SODIUM [Concomitant]
     Dosage: 0.5 MG, BID
  2. CLOZAPINE [Suspect]
     Dosage: 12.5 MG, DAILY
     Route: 048
     Dates: start: 20050203
  3. CITALOPRAM HYDROBROMIDE [Concomitant]
     Dosage: 40 MG DAILY

REACTIONS (2)
  - INTENTIONAL SELF-INJURY [None]
  - OPEN WOUND [None]
